FAERS Safety Report 6640331-8 (Version None)
Quarter: 2010Q1

REPORT INFORMATION
  Report Type: 
  Country: None (occurrence: None)
  Receive Date: 20100303
  Receipt Date: 20100104
  Transmission Date: 20100710
  Serious: Yes (Other)
  Sender: FDA-Public Use
  Company Number: 677832

PATIENT
  Age: 77 Year
  Sex: Female
  Weight: 44.5 kg

DRUGS (2)
  1. BONIVA [Suspect]
     Indication: OSTEOPOROSIS
     Dosage: 1 PER 3 MONTH
     Dates: start: 20090701
  2. SYNTHROID [Suspect]
     Indication: GOITRE
     Dates: start: 19600101

REACTIONS (3)
  - CHOKING SENSATION [None]
  - TOOTH DISORDER [None]
  - TOOTH FRACTURE [None]
